FAERS Safety Report 9815696 (Version 1)
Quarter: 2014Q1

REPORT INFORMATION
  Report Type: Spontaneous
  Country: ES (occurrence: ES)
  Receive Date: 20140114
  Receipt Date: 20140114
  Transmission Date: 20141002
  Serious: Yes (Life-Threatening)
  Sender: FDA-Public Use
  Company Number: ES-PFIZER INC-2014005672

PATIENT
  Age: 69 Year
  Sex: Female

DRUGS (7)
  1. SALAZOPYRINA [Suspect]
     Indication: PSORIATIC ARTHROPATHY
     Dosage: 500 MG, UNK
     Route: 048
     Dates: start: 20130316, end: 20130316
  2. REMICADE [Suspect]
     Indication: PSORIATIC ARTHROPATHY
     Dosage: 300 MG, SINGLE
     Route: 042
     Dates: start: 20130314, end: 20130314
  3. OMEPRAZOL [Concomitant]
     Indication: PROPHYLAXIS AGAINST GASTROINTESTINAL ULCER
     Dosage: 20 MG, DAILY
     Route: 048
     Dates: start: 2009
  4. TORASEMIDE [Concomitant]
     Indication: CARDIAC FAILURE CONGESTIVE
     Dosage: 5 MG, DAILY
     Route: 048
     Dates: start: 2011
  5. LORAZEPAM [Concomitant]
     Indication: INSOMNIA
     Dosage: UNK
     Route: 048
     Dates: start: 2008
  6. TRAMADOL [Concomitant]
     Indication: PAIN
     Dosage: UNK
     Route: 048
     Dates: start: 2011
  7. ACITRETIN [Concomitant]
     Indication: PSORIATIC ARTHROPATHY
     Dosage: 10 MG, DAILY
     Route: 048
     Dates: start: 2012

REACTIONS (3)
  - Acute generalised exanthematous pustulosis [Recovered/Resolved]
  - Renal failure acute [Recovered/Resolved]
  - Pancreatitis acute [Recovered/Resolved]
